FAERS Safety Report 5049571-5 (Version None)
Quarter: 2006Q3

REPORT INFORMATION
  Report Type: 
  Country: None (occurrence: None)
  Receive Date: 20060712
  Receipt Date: 20060605
  Transmission Date: 20061208
  Serious: Yes (Life-Threatening, Hospitalization)
  Sender: FDA-Public Use
  Company Number: BH-BRISTOL-MYERS SQUIBB COMPANY-13400809

PATIENT
  Age: 77 Year
  Sex: Female

DRUGS (2)
  1. ABILIFY [Suspect]
     Indication: MOOD DISORDER DUE TO A GENERAL MEDICAL CONDITION
     Route: 048
  2. CARBAMAZEPINE [Concomitant]

REACTIONS (1)
  - COMA [None]
